FAERS Safety Report 9286077 (Version 2)
Quarter: 2013Q4

REPORT INFORMATION
  Report Type: Spontaneous
  Country: GB (occurrence: None)
  Receive Date: 20130508
  Receipt Date: 20131029
  Transmission Date: 20140711
  Serious: Yes (Other)
  Sender: FDA-Public Use
  Company Number: AUR-APL-2013-03677

PATIENT
  Age: 27 Year
  Sex: Male
  Weight: 64 kg

DRUGS (7)
  1. NAPROXEN [Suspect]
     Indication: BACK PAIN
     Dosage: STOPPED?
  2. NAPROXEN [Suspect]
     Indication: PAIN IN EXTREMITY
     Dosage: STOPPED?
  3. IBUPROFEN (IBUPROFEN) [Suspect]
     Indication: BACK PAIN
     Dosage: STOPPED?
  4. IBUPROFEN (IBUPROFEN) [Suspect]
     Indication: PAIN IN EXTREMITY
     Dosage: STOPPED?
  5. LAMOTRIGINE(LAMOTRIGINE) [Concomitant]
  6. OXYCONTIN(OXYCODONE HYDROCHLORIDE) [Concomitant]
  7. OXYNORM (OXYCODONE HYDROCHLORIDE) [Concomitant]

REACTIONS (6)
  - Epilepsy [None]
  - Feeling abnormal [None]
  - Tremor [None]
  - Chills [None]
  - Balance disorder [None]
  - Stress [None]
